FAERS Safety Report 15883560 (Version 1)
Quarter: 2019Q1

REPORT INFORMATION
  Report Type: Spontaneous
  Country: US (occurrence: US)
  Receive Date: 20190129
  Receipt Date: 20190129
  Transmission Date: 20190417
  Serious: No
  Sender: FDA-Public Use
  Company Number: US-AUROBINDO-AUR-APL-2018-044750

PATIENT
  Sex: Male
  Weight: 88 kg

DRUGS (2)
  1. DULOXETINE DELAYED-RELEASE CAPSULES USP 60 MG [Suspect]
     Active Substance: DULOXETINE HYDROCHLORIDE
     Indication: NEUROPATHY PERIPHERAL
     Dosage: 60 MILLIGRAM, ONCE A DAY
     Route: 048
  2. MIACALCIN [Concomitant]
     Active Substance: CALCITONIN SALMON
     Indication: PRODUCT USED FOR UNKNOWN INDICATION
     Dosage: UNK
     Route: 065

REACTIONS (2)
  - Insomnia [Recovering/Resolving]
  - Somnolence [Recovered/Resolved]
